FAERS Safety Report 5105449-X (Version None)
Quarter: 2006Q3

REPORT INFORMATION
  Report Type: 
  Country: None (occurrence: None)
  Receive Date: 20060915
  Receipt Date: 20060612
  Transmission Date: 20061208
  Serious: No
  Sender: FDA-Public Use
  Company Number: US-GLAXOSMITHKLINE-A0608658A

PATIENT
  Age: 50 Year
  Sex: Female

DRUGS (5)
  1. AVANDARYL [Suspect]
     Dosage: 4MG PER DAY
     Route: 048
     Dates: start: 20050504
  2. UNKNOWN MEDICATION [Concomitant]
  3. ZYRTEC-D 12 HOUR [Concomitant]
  4. LIPITOR [Concomitant]
  5. NPH INSULIN [Concomitant]

REACTIONS (5)
  - ANOREXIA [None]
  - CHROMATURIA [None]
  - DIARRHOEA [None]
  - MUSCLE SPASMS [None]
  - NAUSEA [None]
